FAERS Safety Report 19926595 (Version 1)
Quarter: 2021Q4

REPORT INFORMATION
  Report Type: Spontaneous
  Country: US (occurrence: US)
  Receive Date: 20211007
  Receipt Date: 20211007
  Transmission Date: 20220304
  Serious: No
  Sender: FDA-Public Use
  Company Number: US-INDIVIOR US-INDV-100035-2017

PATIENT
  Age: 56 Year
  Sex: Male

DRUGS (5)
  1. SUBOXONE [Suspect]
     Active Substance: BUPRENORPHINE HYDROCHLORIDE\NALOXONE HYDROCHLORIDE
     Indication: Drug dependence
     Dosage: TWO AND HALF 8 MG FILMS, QD
     Route: 060
  2. SUBOXONE [Suspect]
     Active Substance: BUPRENORPHINE HYDROCHLORIDE\NALOXONE HYDROCHLORIDE
     Indication: Pain
     Dosage: ONE THIRD OF 8 MG FILM, QD
     Route: 060
  3. SUBOXONE [Suspect]
     Active Substance: BUPRENORPHINE HYDROCHLORIDE\NALOXONE HYDROCHLORIDE
     Dosage: ONE HALF OF A 8 MG FILM, QD
     Route: 060
  4. BUPRENORPHINE\NALOXONE [Suspect]
     Active Substance: BUPRENORPHINE\NALOXONE
     Indication: Drug dependence
     Dosage: 16 MG, QD
     Route: 060
  5. FENTANYL [Suspect]
     Active Substance: FENTANYL
     Indication: Product used for unknown indication
     Dosage: UNK
     Route: 065

REACTIONS (10)
  - Visual impairment [Unknown]
  - Drug withdrawal syndrome [Unknown]
  - Intentional underdose [Unknown]
  - Drug dependence [Unknown]
  - Back injury [Not Recovered/Not Resolved]
  - Drug abuse [Unknown]
  - Restlessness [Unknown]
  - Pain [Unknown]
  - Wrong technique in product usage process [Unknown]
  - Insomnia [Unknown]

NARRATIVE: CASE EVENT DATE: 20170701
